FAERS Safety Report 13251218 (Version 1)
Quarter: 2017Q1

REPORT INFORMATION
  Report Type: Report from Study
  Country: US (occurrence: US)
  Receive Date: 20170220
  Receipt Date: 20170220
  Transmission Date: 20170428
  Serious: Yes (Other)
  Sender: FDA-Public Use
  Company Number: US-BRISTOL-MYERS SQUIBB COMPANY-21085709

PATIENT
  Age: 50 Year
  Sex: Female

DRUGS (1)
  1. BELATACEPT [Suspect]
     Active Substance: BELATACEPT
     Indication: RENAL TRANSPLANT
     Route: 065

REACTIONS (3)
  - Transplant rejection [Recovered/Resolved]
  - Thrombotic microangiopathy [Recovered/Resolved]
  - Graft loss [Recovered/Resolved]

NARRATIVE: CASE EVENT DATE: 20110519
